FAERS Safety Report 4971497-3 (Version None)
Quarter: 2006Q2

REPORT INFORMATION
  Report Type: 
  Country: None (occurrence: None)
  Receive Date: 20060413
  Receipt Date: 20060407
  Transmission Date: 20061013
  Serious: Yes (Other)
  Sender: FDA-Public Use
  Company Number: PHBS2006PT05239

PATIENT
  Age: 67 Year
  Sex: Female
  Weight: 63 kg

DRUGS (15)
  1. ZOMETA [Suspect]
     Indication: MULTIPLE MYELOMA
     Route: 042
     Dates: start: 20050401, end: 20060101
  2. THALIDOMIDE [Concomitant]
     Indication: MULTIPLE MYELOMA
     Dosage: 100 MG/D
     Route: 048
     Dates: start: 20050630
  3. DOXORUBICIN HCL [Concomitant]
     Indication: MULTIPLE MYELOMA
     Route: 042
     Dates: start: 20050301, end: 20050401
  4. DOXORUBICIN HCL [Concomitant]
     Route: 042
     Dates: start: 20050630
  5. SPIRONOLACTONE [Concomitant]
     Dosage: 50 MG/D
     Route: 048
     Dates: start: 20050630, end: 20050630
  6. NEUPOGEN [Concomitant]
     Indication: MULTIPLE MYELOMA
     Dosage: 300 UG/D
     Route: 058
     Dates: start: 20050601
  7. SODIUM BICARBONATE [Concomitant]
     Dosage: 2 G/D
     Route: 048
     Dates: start: 20050601, end: 20050721
  8. VINCRISTINE [Concomitant]
     Indication: MULTIPLE MYELOMA
     Route: 042
     Dates: start: 20050301, end: 20050401
  9. CALCIUM CARBONATE [Concomitant]
     Dosage: 3 G/D
     Route: 048
     Dates: start: 20050601
  10. MAGNESIUM LACTATE [Concomitant]
     Route: 048
     Dates: start: 20050601
  11. DEXAMETHASONE [Concomitant]
     Indication: MULTIPLE MYELOMA
     Route: 042
     Dates: start: 20050301
  12. EPOETIN ALFA [Concomitant]
     Route: 042
     Dates: start: 20050601, end: 20051122
  13. CYTARABINE [Concomitant]
     Indication: MULTIPLE MYELOMA
     Dosage: 4000 MG/M2
     Route: 042
     Dates: start: 20050501, end: 20050501
  14. OMEPRAZOLE [Concomitant]
     Dosage: 40 MG/D
     Route: 048
     Dates: start: 20050601
  15. CISPLATIN [Concomitant]
     Indication: MULTIPLE MYELOMA
     Dosage: 100 MG/M2
     Route: 042
     Dates: start: 20050501, end: 20050501

REACTIONS (4)
  - BONE CYST [None]
  - OSTEONECROSIS [None]
  - TOOTH ABSCESS [None]
  - TOOTHACHE [None]
